FAERS Safety Report 25387775 (Version 1)
Quarter: 2025Q2

REPORT INFORMATION
  Report Type: Spontaneous
  Country: US (occurrence: US)
  Receive Date: 20250603
  Receipt Date: 20250603
  Transmission Date: 20250717
  Serious: Yes (Other)
  Sender: TEVA
  Company Number: US-TEVA-VS-3337524

PATIENT

DRUGS (1)
  1. ETHINYL ESTRADIOL\NORETHINDRONE [Suspect]
     Active Substance: ETHINYL ESTRADIOL\NORETHINDRONE
     Indication: Product used for unknown indication
     Route: 048

REACTIONS (2)
  - Coeliac disease [Unknown]
  - Contraindicated product prescribed [Unknown]
